FAERS Safety Report 10048678 (Version 1)
Quarter: 2014Q1

REPORT INFORMATION
  Report Type: Other
  Country: GB (occurrence: GB)
  Receive Date: 20140331
  Receipt Date: 20140331
  Transmission Date: 20141002
  Serious: Yes (Life-Threatening)
  Sender: FDA-Public Use
  Company Number: GB-BRISTOL-MYERS SQUIBB COMPANY-20567301

PATIENT
  Age: 16 Year
  Sex: Female

DRUGS (6)
  1. CINNARIZINE [Suspect]
     Dosage: STRENGTH:210MG
  2. BENDROFLUMETHIAZIDE [Suspect]
     Dosage: STRENGTH:70MG
  3. FELODIPINE [Suspect]
     Dosage: MODIFIED-RELEASE TABLETS,STRENGTH:280MG
  4. DOXAZOSIN [Suspect]
     Dosage: STRENGTH:28MG
  5. FLUCLOXACILLIN [Suspect]
     Dosage: STRENGTH:3.5G
  6. ALCOHOL [Concomitant]

REACTIONS (3)
  - Hypotension [Recovering/Resolving]
  - Overdose [Unknown]
  - Polyuria [Recovering/Resolving]
